FAERS Safety Report 6702682-8 (Version None)
Quarter: 2010Q2

REPORT INFORMATION
  Report Type: 
  Country: None (occurrence: None)
  Receive Date: 20100429
  Receipt Date: 20100419
  Transmission Date: 20101027
  Serious: Yes (Other)
  Sender: FDA-Public Use
  Company Number: US-PFIZER INC-2010026726

PATIENT
  Sex: Female
  Weight: 59.9 kg

DRUGS (7)
  1. LYRICA [Suspect]
     Indication: NEUROPATHY PERIPHERAL
     Dosage: 50 MG, 3X/DAY
     Dates: start: 20100204
  2. LYRICA [Suspect]
     Indication: FIBROMYALGIA
     Dosage: UNK
     Route: 048
  3. LEXAPRO [Suspect]
     Dosage: UNK
  4. LITHIUM [Suspect]
     Dosage: UNK
     Route: 048
  5. ELAVIL [Suspect]
     Dosage: UNK
     Route: 048
  6. CLONAZEPAM [Concomitant]
     Indication: INSOMNIA
     Dosage: 1 MG, UNK
  7. KLONOPIN [Concomitant]
     Dosage: UNK
     Route: 048

REACTIONS (13)
  - CONSTIPATION [None]
  - DRUG INEFFECTIVE [None]
  - FIBROMYALGIA [None]
  - GENERAL PHYSICAL CONDITION ABNORMAL [None]
  - INSOMNIA [None]
  - MANIA [None]
  - MICTURITION FREQUENCY DECREASED [None]
  - NEURALGIA [None]
  - OEDEMA PERIPHERAL [None]
  - PAIN IN EXTREMITY [None]
  - SUICIDAL IDEATION [None]
  - THYROID DISORDER [None]
  - WEIGHT INCREASED [None]
